FAERS Safety Report 7791449-8 (Version None)
Quarter: 2011Q4

REPORT INFORMATION
  Report Type: 
  Country: None (occurrence: None)
  Receive Date: 20111003
  Receipt Date: 20110928
  Transmission Date: 20120403
  Serious: No
  Sender: FDA-Public Use
  Company Number: US-B.I. PHARMACEUTICALS,INC./RIDGEFIELD-2011-BP-23082BP

PATIENT
  Sex: Female

DRUGS (4)
  1. PRADAXA [Suspect]
     Indication: ATRIAL FIBRILLATION
     Dosage: 300 MG
     Route: 048
     Dates: start: 20110730
  2. VERAPAMIL [Concomitant]
     Indication: MIGRAINE
  3. LESCOL XL [Concomitant]
     Indication: BLOOD CHOLESTEROL INCREASED
     Route: 048
     Dates: start: 20090101
  4. VERAPAMIL [Concomitant]
     Indication: HYPERTENSION
     Dosage: 270 MG
     Route: 048
     Dates: start: 20010101

REACTIONS (2)
  - PRURITUS [None]
  - DIZZINESS [None]
